FAERS Safety Report 17769419 (Version 1)
Quarter: 2020Q2

REPORT INFORMATION
  Report Type: Spontaneous
  Country: CA (occurrence: CA)
  Receive Date: 20200512
  Receipt Date: 20200512
  Transmission Date: 20200714
  Serious: Yes (Other)
  Sender: FDA-Public Use
  Company Number: CA-TEVA-2020-CA-1233195

PATIENT
  Age: 73 Year
  Sex: Male

DRUGS (3)
  1. ATENOLOL TABLETS, BP [Suspect]
     Active Substance: ATENOLOL
     Dosage: 50 MILLIGRAM DAILY;
  2. METOPROLOL. [Suspect]
     Active Substance: METOPROLOL
     Dosage: 50 MILLIGRAM DAILY;
  3. NIFEDIPINE. [Suspect]
     Active Substance: NIFEDIPINE
     Dosage: 90 MILLIGRAM DAILY;

REACTIONS (2)
  - Hypotension [Recovered/Resolved]
  - Atrioventricular block complete [Recovered/Resolved]
